FAERS Safety Report 25089495 (Version 1)
Quarter: 2025Q1

REPORT INFORMATION
  Report Type: Spontaneous
  Country: US (occurrence: US)
  Receive Date: 20250318
  Receipt Date: 20250318
  Transmission Date: 20250408
  Serious: Yes (Hospitalization)
  Sender: Velzen Pharma
  Company Number: US-Velzen pharma pvt ltd-2173131

PATIENT

DRUGS (1)
  1. NIFEDIPINE [Suspect]
     Active Substance: NIFEDIPINE
     Indication: Blood pressure measurement

REACTIONS (8)
  - Chest pain [Unknown]
  - Product use in unapproved indication [Unknown]
  - Nausea [Unknown]
  - Heart rate increased [Unknown]
  - Pain [Unknown]
  - Hypertension [Unknown]
  - Back pain [Unknown]
  - Vomiting [Unknown]
